FAERS Safety Report 20612788 (Version 1)
Quarter: 2022Q1

REPORT INFORMATION
  Report Type: Spontaneous
  Country: US (occurrence: US)
  Receive Date: 20220318
  Receipt Date: 20220318
  Transmission Date: 20220423
  Serious: Yes (Other)
  Sender: FDA-Public Use
  Company Number: US-PHARMAAND-2022PHR00090

PATIENT
  Sex: Female

DRUGS (14)
  1. PEGASYS [Suspect]
     Active Substance: PEGINTERFERON ALFA-2A
     Indication: Thrombocytosis
     Dosage: 45 ?G (0.25 ML), 1X/WEEK
  2. VENTOLIN HFA [Concomitant]
     Active Substance: ALBUTEROL SULFATE
  3. VITAMIN C [Concomitant]
     Active Substance: ASCORBIC ACID
  4. ECOTRIN (ASPIRIN) EC [Concomitant]
  5. CALCIUM CARBONATE [Concomitant]
     Active Substance: CALCIUM CARBONATE
  6. VITAMIN D3 [Concomitant]
     Active Substance: CHOLECALCIFEROL
  7. LOTRISONE [Concomitant]
     Active Substance: BETAMETHASONE DIPROPIONATE\CLOTRIMAZOLE
  8. CYANOCOBALAMIN [Concomitant]
     Active Substance: CYANOCOBALAMIN
  9. FLONASE [Concomitant]
     Active Substance: FLUTICASONE PROPIONATE
  10. ZESTRIL [Concomitant]
     Active Substance: LISINOPRIL
  11. PRILOSEC [Concomitant]
     Active Substance: OMEPRAZOLE MAGNESIUM
  12. PAXIL [Concomitant]
     Active Substance: PAROXETINE HYDROCHLORIDE
  13. POTASSIUM GLUCONATE [Concomitant]
     Active Substance: POTASSIUM GLUCONATE
  14. ZOCOR [Concomitant]
     Active Substance: SIMVASTATIN

REACTIONS (12)
  - Sinus node dysfunction [Unknown]
  - Thrombocytosis [Unknown]
  - Vitamin D deficiency [Unknown]
  - Essential hypertension [Unknown]
  - Asthma [Unknown]
  - Rhinitis allergic [Unknown]
  - Otitis media acute [Unknown]
  - Muscle strain [Unknown]
  - Type IIa hyperlipidaemia [Unknown]
  - Restless legs syndrome [Unknown]
  - Arthralgia [Unknown]
  - Drug ineffective for unapproved indication [Unknown]
